FAERS Safety Report 9160368 (Version 2)
Quarter: 2013Q2

REPORT INFORMATION
  Report Type: Spontaneous
  Country: US (occurrence: US)
  Receive Date: 20130313
  Receipt Date: 20130506
  Transmission Date: 20140414
  Serious: Yes (Other)
  Sender: FDA-Public Use
  Company Number: US-ASTRAZENECA-2013SE14708

PATIENT
  Age: 60 Year
  Sex: Male
  Weight: 146.5 kg

DRUGS (6)
  1. CRESTOR [Suspect]
     Indication: BLOOD CHOLESTEROL INCREASED
     Route: 048
  2. CRESTOR [Suspect]
     Indication: HYPERTENSION
     Route: 048
  3. CRESTOR [Suspect]
     Indication: BLOOD CHOLESTEROL INCREASED
     Route: 048
     Dates: end: 20121130
  4. CRESTOR [Suspect]
     Indication: HYPERTENSION
     Route: 048
     Dates: end: 20121130
  5. DIOVAN [Concomitant]
     Indication: HYPERTENSION
     Dates: start: 201301
  6. AXIRON [Concomitant]
     Indication: BLOOD TESTOSTERONE DECREASED
     Dates: start: 20121016

REACTIONS (7)
  - Nerve injury [Unknown]
  - Hypoaesthesia [Unknown]
  - Sensory loss [Recovering/Resolving]
  - Neuralgia [Recovering/Resolving]
  - Muscle spasms [Recovering/Resolving]
  - Insomnia [Unknown]
  - Off label use [Unknown]
